FAERS Safety Report 14432435 (Version 2)
Quarter: 2018Q1

REPORT INFORMATION
  Report Type: Spontaneous
  Country: DE (occurrence: DE)
  Receive Date: 20180124
  Receipt Date: 20180301
  Transmission Date: 20180509
  Serious: Yes (Death)
  Sender: FDA-Public Use
  Company Number: PHHY2018DE008414

PATIENT
  Sex: Female

DRUGS (1)
  1. ACETYLSALICYLIC ACID [Suspect]
     Active Substance: ASPIRIN
     Indication: PRODUCT USED FOR UNKNOWN INDICATION
     Route: 015

REACTIONS (3)
  - Foetal growth restriction [Fatal]
  - Foetal death [Fatal]
  - Ultrasound Doppler abnormal [Fatal]
